FAERS Safety Report 9021794 (Version 1)
Quarter: 2013Q1

REPORT INFORMATION
  Report Type: Spontaneous
  Country: None (occurrence: US)
  Receive Date: 20130119
  Receipt Date: 20130119
  Transmission Date: 20140127
  Serious: No
  Sender: FDA-Public Use
  Company Number: US-ALLERGAN-1209383US

PATIENT
  Age: 43 Year
  Sex: Female

DRUGS (2)
  1. BOTOX COSMETIC [Suspect]
     Indication: SKIN WRINKLING
     Dosage: 32 UNITS, SINGLE
     Route: 030
     Dates: start: 20120619, end: 20120619
  2. BOTOX COSMETIC [Suspect]
     Indication: SKIN WRINKLING

REACTIONS (6)
  - Neck pain [Unknown]
  - Facial paresis [Unknown]
  - Headache [Unknown]
  - Headache [Recovered/Resolved]
  - Nausea [Unknown]
  - Pain of skin [Unknown]
